FAERS Safety Report 8119831-X (Version None)
Quarter: 2012Q1

REPORT INFORMATION
  Report Type: 
  Country: None (occurrence: None)
  Receive Date: 20120207
  Receipt Date: 20120123
  Transmission Date: 20120608
  Serious: Yes (Hospitalization)
  Sender: FDA-Public Use
  Company Number: KR-WATSON-2012-01791

PATIENT
  Age: 46 Year
  Sex: Male

DRUGS (2)
  1. METRONIDAZOLE [Suspect]
     Indication: PLEURAL EFFUSION
     Dosage: AFTER 9 DAYS OF IV, STARTED ORAL X15 DAYS
     Route: 048
  2. METRONIDAZOLE [Suspect]
     Indication: PNEUMONIA
     Dosage: 1500 MG, DAILY X9 DAYS
     Route: 042

REACTIONS (1)
  - TOXIC ENCEPHALOPATHY [None]
